FAERS Safety Report 12774683 (Version 1)
Quarter: 2016Q3

REPORT INFORMATION
  Report Type: Spontaneous
  Country: US (occurrence: US)
  Receive Date: 20160921
  Receipt Date: 20160921
  Transmission Date: 20161109
  Serious: Yes (Other)
  Sender: FDA-Public Use
  Company Number: None

PATIENT
  Sex: Female
  Weight: 81 kg

DRUGS (3)
  1. NEUTROGENA RAPID WRINKLE REPAIR MOISTURIZER SPF 30 [Suspect]
     Active Substance: AVOBENZONE\HOMOSALATE\OCTISALATE\OCTOCRYLENE
     Indication: CUTIS LAXA
     Dosage: PEARL SIZE AMT, 1X/DAY, TOPIC
     Route: 061
     Dates: start: 201606, end: 20160626
  2. NEUTROGENA DEEP CLEAN FACIAL CLEANSER [Suspect]
     Active Substance: COSMETICS
     Dosage: UNK, 1X DAILY, TOPICAL
     Route: 061
     Dates: start: 201606, end: 20160626
  3. BLOOD PRESSURE MEDICINE [Concomitant]
     Active Substance: UNSPECIFIED INGREDIENT

REACTIONS (9)
  - Rash [None]
  - Skin tightness [None]
  - Application site burn [None]
  - Hypersensitivity [None]
  - Skin discolouration [None]
  - Blister [None]
  - Neck pain [None]
  - Pruritus [None]
  - Dermatitis contact [None]

NARRATIVE: CASE EVENT DATE: 201606
